FAERS Safety Report 10150026 (Version 1)
Quarter: 2014Q2

REPORT INFORMATION
  Report Type: Spontaneous
  Country: US (occurrence: US)
  Receive Date: 20140502
  Receipt Date: 20140502
  Transmission Date: 20141212
  Serious: Yes (Hospitalization, Other)
  Sender: FDA-Public Use
  Company Number: US-GLAXOSMITHKLINE-A1070963A

PATIENT
  Age: 51 Year
  Sex: Male

DRUGS (11)
  1. ARZERRA [Suspect]
     Indication: CHRONIC LYMPHOCYTIC LEUKAEMIA
     Dosage: 300MG SINGLE DOSE
     Route: 042
     Dates: start: 20140417
  2. PROTONIX [Concomitant]
  3. BACTRIM [Concomitant]
  4. ZOFRAN [Concomitant]
  5. ACYCLOVIR [Concomitant]
  6. NEURONTIN [Concomitant]
  7. ZYPREXA [Concomitant]
  8. POSACONAZOLE [Concomitant]
  9. APAP [Concomitant]
  10. SOLU-MEDROL [Concomitant]
  11. BENADRYL [Concomitant]

REACTIONS (2)
  - Urticaria [Recovering/Resolving]
  - Chest discomfort [Recovering/Resolving]
